FAERS Safety Report 9835025 (Version 1)
Quarter: 2014Q1

REPORT INFORMATION
  Report Type: Spontaneous
  Country: US (occurrence: US)
  Receive Date: 20140122
  Receipt Date: 20140122
  Transmission Date: 20141002
  Serious: No
  Sender: FDA-Public Use
  Company Number: US-ACORDA-ACO_33869_2013

PATIENT
  Age: 52 Year
  Sex: Female
  Weight: 68.27 kg

DRUGS (3)
  1. ZANAFLEX TABLETS [Suspect]
     Indication: MUSCLE SPASMS
     Dosage: 4 MG, QD
     Route: 048
     Dates: start: 20130111
  2. BUPROPION [Concomitant]
     Indication: PRODUCT USED FOR UNKNOWN INDICATION
     Dosage: 300 MG, UNK
     Dates: start: 2002
  3. PROZAC [Concomitant]
     Indication: PRODUCT USED FOR UNKNOWN INDICATION
     Dosage: 40 MG, UNK
     Dates: start: 2002

REACTIONS (3)
  - Product packaging counterfeit [Unknown]
  - Somnolence [Recovering/Resolving]
  - Drug ineffective [Unknown]
